FAERS Safety Report 8932714 (Version 1)
Quarter: 2012Q4

REPORT INFORMATION
  Report Type: 
  Country: DE (occurrence: DE)
  Receive Date: 20121129
  Receipt Date: 20121129
  Transmission Date: 20130627
  Serious: Yes (Hospitalization, Other)
  Sender: FDA-Public Use
  Company Number: DE-BRISTOL-MYERS SQUIBB COMPANY-17151895

PATIENT
  Age: 15 Year
  Sex: Female

DRUGS (1)
  1. ABILIFY TABS [Suspect]
     Route: 048

REACTIONS (2)
  - Weight increased [Unknown]
  - Binge eating [Unknown]
